FAERS Safety Report 9719977 (Version 2)
Quarter: 2014Q1

REPORT INFORMATION
  Report Type: Spontaneous
  Country: US (occurrence: US)
  Receive Date: 20131128
  Receipt Date: 20140120
  Transmission Date: 20141002
  Serious: No
  Sender: FDA-Public Use
  Company Number: US-009507513-1311USA011699

PATIENT
  Sex: Female
  Weight: 65.31 kg

DRUGS (1)
  1. NEXPLANON [Suspect]
     Indication: CONTRACEPTION
     Dosage: 1 ROD
     Route: 059
     Dates: start: 20130626

REACTIONS (3)
  - Haemorrhage [Recovered/Resolved]
  - Device kink [Unknown]
  - Medical device complication [Unknown]
